FAERS Safety Report 6905995-X (Version None)
Quarter: 2010Q3

REPORT INFORMATION
  Report Type: 
  Country: None (occurrence: None)
  Receive Date: 20100804
  Receipt Date: 20100722
  Transmission Date: 20110219
  Serious: Yes (Other)
  Sender: FDA-Public Use
  Company Number: PHHY2010DE48380

PATIENT
  Age: 52 Year
  Sex: Female

DRUGS (2)
  1. MERICOMB [Suspect]
     Indication: HORMONE REPLACEMENT THERAPY
     Dosage: 1 MG
     Route: 048
     Dates: start: 20100501
  2. LORAZEPAM [Concomitant]
     Dosage: UNK

REACTIONS (2)
  - DEPRESSIVE SYMPTOM [None]
  - MENTAL DISORDER [None]
